FAERS Safety Report 14596899 (Version 3)
Quarter: 2018Q4

REPORT INFORMATION
  Report Type: Spontaneous
  Country: IT (occurrence: IT)
  Receive Date: 20180304
  Receipt Date: 20181120
  Transmission Date: 20190204
  Serious: Yes (Other)
  Sender: FDA-Public Use
  Company Number: IT-ACCORD-063343

PATIENT
  Age: 53 Year
  Sex: Male
  Weight: 116 kg

DRUGS (7)
  1. CISPLATIN. [Suspect]
     Active Substance: CISPLATIN
     Indication: ADRENOCORTICAL CARCINOMA
     Dosage: ON DAY 3 AND 4,
     Route: 042
  2. DOXORUBICIN [Suspect]
     Active Substance: DOXORUBICIN
     Indication: ADRENOCORTICAL CARCINOMA
     Dosage: 40 MG/M2, UNK DOXORUBIN ON DAY 1 ETOPOSIDE ON DAY 2, 3 AND 4 CISPLATIN ON?DAY 3 AND 4
     Route: 042
  3. MITOTANE [Suspect]
     Active Substance: MITOTANE
     Indication: ADRENOCORTICAL CARCINOMA
     Dosage: AT WEEK 4,8, 12
     Route: 048
  4. ETOPOSIDE. [Suspect]
     Active Substance: ETOPOSIDE
     Indication: ADRENOCORTICAL CARCINOMA
     Dosage: ON DAY 2, 3 AND 4, DOXORUBIN ON DAY 1 ETOPOSIDE ON DAY 2, 3 AND 4 CISPLATIN ON DAY 3 AND 4
     Route: 042
  5. METYRAPONE/METYRAPONE TARTRATE [Suspect]
     Active Substance: METYRAPONE
     Indication: CUSHING^S SYNDROME
     Dosage: 500 MG AT WEEK 4, 250 MG AT WEEK 8, 12
     Route: 048
  6. GRANULOCYTE COLONY STIMULATING [Concomitant]
     Active Substance: GRANULOCYTE COLONY-STIMULATING FACTOR NOS
     Indication: PROPHYLAXIS
  7. PEGFILGRASTIM [Concomitant]
     Active Substance: PEGFILGRASTIM
     Indication: PROPHYLAXIS
     Route: 065

REACTIONS (4)
  - Therapeutic response decreased [Unknown]
  - Off label use [Unknown]
  - Asthenia [Recovered/Resolved]
  - Anaemia [Recovered/Resolved]
